FAERS Safety Report 5631529-6 (Version None)
Quarter: 2008Q1

REPORT INFORMATION
  Report Type: 
  Country: None (occurrence: None)
  Receive Date: 20080215
  Receipt Date: 20080130
  Transmission Date: 20080703
  Serious: Yes (Other)
  Sender: FDA-Public Use
  Company Number: VER_00100_2008

PATIENT
  Sex: Female
  Weight: 68.0396 kg

DRUGS (11)
  1. EPINEPHRINE [Suspect]
     Indication: HYPERSENSITIVITY
     Dosage: 0.3 MG INTRAMUSCULAR
     Route: 030
     Dates: start: 20080125
  2. XOPENEX [Concomitant]
  3. GUAIFENESIN [Concomitant]
  4. ALLEGRA [Concomitant]
  5. PREVACID [Concomitant]
  6. FLAXSEED OIL [Concomitant]
  7. SENNA [Concomitant]
  8. MULTI-VITAMIN [Concomitant]
  9. ASCORBIC ACID [Concomitant]
  10. BIOFLAVANOID [Concomitant]
  11. SINGULAIR [Concomitant]

REACTIONS (2)
  - DEVICE FAILURE [None]
  - PHARMACEUTICAL PRODUCT COMPLAINT [None]
